FAERS Safety Report 5472937-6 (Version None)
Quarter: 2007Q4

REPORT INFORMATION
  Report Type: 
  Country: None (occurrence: None)
  Receive Date: 20071001
  Receipt Date: 20070316
  Transmission Date: 20080405
  Serious: No
  Sender: FDA-Public Use
  Company Number: US-ASTRAZENECA-2006UW27691

PATIENT
  Age: 68 Year
  Sex: Female
  Weight: 90.7 kg

DRUGS (8)
  1. ARIMIDEX [Suspect]
     Indication: BREAST CANCER
     Route: 048
     Dates: start: 20061001
  2. ALEVE [Concomitant]
  3. TYLENOL (CAPLET) [Concomitant]
  4. MACRODANTIN [Concomitant]
     Indication: URINARY TRACT INFECTION
  5. EFFEXOR [Concomitant]
     Indication: DEPRESSION
     Dates: end: 20061201
  6. NEXIUM [Concomitant]
     Route: 048
  7. FOSOMAX [Concomitant]
  8. MOTRIN [Concomitant]

REACTIONS (5)
  - ARTHRALGIA [None]
  - DEPRESSION [None]
  - FLUID RETENTION [None]
  - HOT FLUSH [None]
  - MOOD ALTERED [None]
